FAERS Safety Report 8474129-5 (Version None)
Quarter: 2012Q2

REPORT INFORMATION
  Report Type: 
  Country: None (occurrence: None)
  Receive Date: 20120628
  Receipt Date: 20120625
  Transmission Date: 20120825
  Serious: No
  Sender: FDA-Public Use
  Company Number: US-PFIZER INC-2012093328

PATIENT
  Sex: Female
  Weight: 47.53 kg

DRUGS (10)
  1. PREVACID [Concomitant]
     Dosage: UNK
  2. VITAMIN D [Concomitant]
     Dosage: 2000 IU, 1X/DAY
     Route: 048
  3. SUTENT [Suspect]
     Dosage: 50 MG THAT DAY AND ALTERNATE EVERY OTHER DAY WITH 25 MG
     Dates: start: 20120514
  4. TRAMADOL HYDROCHLORIDE [Concomitant]
     Indication: ARTHRITIS
  5. SUTENT [Suspect]
     Indication: METASTATIC RENAL CELL CARCINOMA
     Dosage: 50 MG, 1X/DAY CYCLE 4 WEEKS ON AND 2 OFF
     Dates: start: 20120329, end: 20120101
  6. BONIVA [Concomitant]
     Dosage: 150 MG, MONTHLY
     Route: 048
  7. PREMARIN [Concomitant]
     Dosage: 0.625 MG, 1X/DAY (QHS AS DIRECTED)
     Route: 048
  8. TRAMADOL HYDROCHLORIDE [Concomitant]
     Indication: PAIN
     Dosage: 50 MG, EVERY 4 HRS
     Route: 048
  9. CALTRATE 600 +D PLUS [Concomitant]
     Dosage: 600 MG, 1X/DAY
     Route: 048
  10. TRAZODONE [Concomitant]
     Dosage: UNK

REACTIONS (12)
  - PALMAR-PLANTAR ERYTHRODYSAESTHESIA SYNDROME [None]
  - HEADACHE [None]
  - FATIGUE [None]
  - WHITE BLOOD CELL COUNT DECREASED [None]
  - HAEMOGLOBIN DECREASED [None]
  - DYSGEUSIA [None]
  - PLATELET COUNT DECREASED [None]
  - HYPERKERATOSIS [None]
  - BLISTER [None]
  - SKIN LESION [None]
  - ORAL PAIN [None]
  - SKIN EXFOLIATION [None]
